FAERS Safety Report 9374357 (Version 1)
Quarter: 2013Q4

REPORT INFORMATION
  Report Type: Spontaneous
  Country: US (occurrence: None)
  Receive Date: 20130627
  Receipt Date: 20130627
  Transmission Date: 20140711
  Serious: Yes (Hospitalization)
  Sender: FDA-Public Use
  Company Number: None

PATIENT
  Age: 74 Year
  Sex: Male
  Weight: 90 kg

DRUGS (13)
  1. GEMCITABINE [Suspect]
     Indication: PANCREATIC CARCINOMA METASTATIC
     Dates: start: 20121109
  2. ACETAMINOPHEN [Concomitant]
  3. XANAX [Concomitant]
  4. HEPARIN FLUSH [Concomitant]
  5. EMLA CREAM [Concomitant]
  6. ATIVAN [Concomitant]
  7. MEGACE [Concomitant]
  8. PRILOSEC [Concomitant]
  9. ZOFRAN [Concomitant]
  10. GAS-X [Concomitant]
  11. NACL FLUSH [Concomitant]
  12. ULTRARAM [Concomitant]
  13. 5-FLOUROURACIL [Suspect]
     Indication: PANCREATIC CARCINOMA
     Route: 042
     Dates: start: 20121109

REACTIONS (5)
  - Pneumonitis [None]
  - Atrial fibrillation [None]
  - Hypoxia [None]
  - Sepsis [None]
  - Cardiac failure [None]
